FAERS Safety Report 7416821-7 (Version None)
Quarter: 2011Q2

REPORT INFORMATION
  Report Type: 
  Country: None (occurrence: None)
  Receive Date: 20110406
  Receipt Date: 20110331
  Transmission Date: 20111010
  Serious: Yes (Other)
  Sender: FDA-Public Use
  Company Number: B0709887A

PATIENT
  Age: 52 Year
  Sex: Female

DRUGS (3)
  1. VANCOMYCIN [Suspect]
     Dosage: 1 GRAM (S) / INTRAVENOUS
     Route: 042
  2. TOBRAMYCIN [Suspect]
     Indication: STREPTOCOCCAL INFECTION
     Dosage: 75 MG/ PER DAY / INTRPERITIONEAL
     Route: 033
  3. CEFTAZIDIME SODIUM [Suspect]
     Indication: STREPTOCOCCAL INFECTION
     Dosage: 1 GRAM(S) / PER DAY / INTRAPERITIONEAL
     Route: 033

REACTIONS (3)
  - PAIN [None]
  - LEUKOPENIA [None]
  - PYREXIA [None]
